FAERS Safety Report 6339052-0 (Version None)
Quarter: 2009Q3

REPORT INFORMATION
  Report Type: 
  Country: None (occurrence: None)
  Receive Date: 20090903
  Receipt Date: 20090824
  Transmission Date: 20100115
  Serious: Yes (Hospitalization)
  Sender: FDA-Public Use
  Company Number: BE-ELI_LILLY_AND_COMPANY-BE200907001461

PATIENT
  Sex: Male
  Weight: 66.4 kg

DRUGS (13)
  1. PEMETREXED [Suspect]
     Dosage: 500 MG/M2, OTHER EVERY 21 DAYS
     Route: 042
  2. PEMETREXED [Suspect]
     Dosage: UNK, ON D1 EVERY 21 DAYS
     Dates: start: 20090603
  3. CISPLATIN [Suspect]
     Indication: NON-SMALL CELL LUNG CANCER
     Dosage: 75 MG/M2, OTHER DAY ONE EVERY 21 DAYS
     Route: 042
  4. BEST SUPPORTIVE CARE [Suspect]
     Indication: NON-SMALL CELL LUNG CANCER
     Dosage: UNK, OTHER EVERY 21 DAYS
     Route: 042
     Dates: start: 20090603
  5. FOLIC ACID [Concomitant]
     Indication: PROPHYLAXIS
     Dates: start: 20090306
  6. VITAMIN B-12 [Concomitant]
     Dates: start: 20090306
  7. MEDROL [Concomitant]
     Indication: PROPHYLAXIS
     Dates: start: 20090306
  8. EMCONCOR [Concomitant]
     Indication: HYPERTENSION
  9. ASPIRIN [Concomitant]
     Indication: CARDIOVASCULAR DISORDER
  10. ZANTAC [Concomitant]
     Indication: PROPHYLAXIS
  11. DURAGESIC-100 [Concomitant]
     Indication: PAIN
  12. LITICAN [Concomitant]
     Indication: VOMITING
  13. STILNOCT [Concomitant]
     Indication: SLEEP DISORDER

REACTIONS (2)
  - NAUSEA [None]
  - PANCYTOPENIA [None]
